FAERS Safety Report 24754869 (Version 1)
Quarter: 2024Q4

REPORT INFORMATION
  Report Type: Spontaneous
  Country: DE (occurrence: DE)
  Receive Date: 20241219
  Receipt Date: 20241219
  Transmission Date: 20250114
  Serious: Yes (Other)
  Sender: PFIZER
  Company Number: DE-PFIZER INC-202400304856

PATIENT
  Age: 43 Year
  Sex: Female
  Weight: 71 kg

DRUGS (7)
  1. TUKYSA [Suspect]
     Active Substance: TUCATINIB
     Dosage: 300 MG, WEEKLY (1ST CYCLE)
     Route: 048
     Dates: start: 202407, end: 202408
  2. TUKYSA [Suspect]
     Active Substance: TUCATINIB
     Dosage: 150 MG, WEEKLY (2ND CYCLE)
     Route: 048
     Dates: start: 20240920, end: 20240923
  3. TUKYSA [Suspect]
     Active Substance: TUCATINIB
     Dosage: UNK
     Dates: start: 20240923
  4. CAPECITABINE [Concomitant]
     Active Substance: CAPECITABINE
     Dosage: 1000 MG/KG, CYCLIC (1-0-1, D1-14 Q 21)
  5. TRASTUZUMAB [Concomitant]
     Active Substance: TRASTUZUMAB
     Dosage: 8 MG/KG
  6. TRASTUZUMAB [Concomitant]
     Active Substance: TRASTUZUMAB
     Dosage: 6 MG/KG, EVERY 3 WEEKS
  7. DENOSUMAB [Concomitant]
     Active Substance: DENOSUMAB
     Indication: Metastases to bone
     Dosage: 120 MG, MONTHLY
     Route: 058

REACTIONS (3)
  - Hepatic enzyme increased [Recovered/Resolved]
  - Vomiting [Recovered/Resolved]
  - Diarrhoea [Recovered/Resolved]

NARRATIVE: CASE EVENT DATE: 20240902
